FAERS Safety Report 10562226 (Version 2)
Quarter: 2014Q4

REPORT INFORMATION
  Report Type: Spontaneous
  Country: US (occurrence: None)
  Receive Date: 20141031
  Receipt Date: 20141117
  Transmission Date: 20150529
  Serious: Yes (Other)
  Sender: FDA-Public Use
  Company Number: 2014-US-013861

PATIENT
  Sex: Female
  Weight: 78 kg

DRUGS (2)
  1. XYREM [Suspect]
     Active Substance: SODIUM OXYBATE
     Indication: SOMNOLENCE
     Route: 048
     Dates: start: 200505
  2. XYREM [Suspect]
     Active Substance: SODIUM OXYBATE
     Indication: NARCOLEPSY
     Route: 048
     Dates: start: 200505

REACTIONS (11)
  - Grip strength decreased [None]
  - Transient ischaemic attack [None]
  - Mental disorder [None]
  - Cognitive disorder [None]
  - Temporal arteritis [None]
  - Ligament sprain [None]
  - Somnolence [None]
  - Asthenia [None]
  - Diplopia [None]
  - Fall [None]
  - Hallucination [None]

NARRATIVE: CASE EVENT DATE: 2014
